FAERS Safety Report 17943442 (Version 2)
Quarter: 2020Q2

REPORT INFORMATION
  Report Type: Spontaneous
  Country: US (occurrence: US)
  Receive Date: 20200625
  Receipt Date: 20200626
  Transmission Date: 20200714
  Serious: No
  Sender: FDA-Public Use
  Company Number: US-TEVA-2020-US-1790876

PATIENT
  Sex: Female
  Weight: 80.74 kg

DRUGS (1)
  1. CABERGOLINE TEVA [Suspect]
     Active Substance: CABERGOLINE
     Indication: HYPERPROLACTINAEMIA
     Dosage: HALF OF A TABLET TWICE WEEKLY
     Route: 048
     Dates: start: 2007

REACTIONS (4)
  - Abdominal pain upper [Unknown]
  - Constipation [Unknown]
  - Abdominal discomfort [Unknown]
  - Drug intolerance [Unknown]

NARRATIVE: CASE EVENT DATE: 2015
